FAERS Safety Report 7397660-2 (Version None)
Quarter: 2011Q2

REPORT INFORMATION
  Report Type: 
  Country: None (occurrence: None)
  Receive Date: 20110406
  Receipt Date: 20110325
  Transmission Date: 20111010
  Serious: Yes (Other)
  Sender: FDA-Public Use
  Company Number: PHHY2011US25009

PATIENT
  Age: 58 Year
  Sex: Male

DRUGS (3)
  1. LIDOCAINE [Suspect]
     Dosage: UNK UKN, UNK
  2. EPINEPHRINE [Interacting]
     Dosage: 0.04 MG, UNK
  3. PROPRANOLOL [Interacting]
     Indication: HYPERTENSION
     Dosage: 20 MG, TID

REACTIONS (4)
  - HYPERTENSIVE CRISIS [None]
  - DRUG INTERACTION [None]
  - HEART RATE INCREASED [None]
  - BLOOD PRESSURE INCREASED [None]
